FAERS Safety Report 23363577 (Version 2)
Quarter: 2024Q1

REPORT INFORMATION
  Report Type: Spontaneous
  Country: JP (occurrence: JP)
  Receive Date: 20240103
  Receipt Date: 20240228
  Transmission Date: 20240410
  Serious: Yes (Other)
  Sender: FDA-Public Use
  Company Number: JP-BRISTOL-MYERS SQUIBB COMPANY-2023-188533

PATIENT
  Age: 80 Year
  Sex: Male

DRUGS (3)
  1. YERVOY [Suspect]
     Active Substance: IPILIMUMAB
     Indication: Non-small cell lung cancer recurrent
     Route: 041
     Dates: start: 202312
  2. OPDIVO [Suspect]
     Active Substance: NIVOLUMAB
     Indication: Non-small cell lung cancer recurrent
     Route: 041
     Dates: start: 202312
  3. OPDIVO [Suspect]
     Active Substance: NIVOLUMAB
     Route: 041
     Dates: start: 202401

REACTIONS (1)
  - Facial paralysis [Recovered/Resolved]

NARRATIVE: CASE EVENT DATE: 20231201
